FAERS Safety Report 5644295-5 (Version None)
Quarter: 2008Q1

REPORT INFORMATION
  Report Type: 
  Country: None (occurrence: None)
  Receive Date: 20080229
  Receipt Date: 20080221
  Transmission Date: 20080703
  Serious: Yes (Other)
  Sender: FDA-Public Use
  Company Number: PHBS2008BR02503

PATIENT
  Sex: Female

DRUGS (2)
  1. TRILEPTAL [Suspect]
     Dosage: 300 MG, UNK
  2. HALDOL [Suspect]
     Indication: ANXIETY
     Dosage: 5 DF/DAILY

REACTIONS (4)
  - DISORIENTATION [None]
  - DIZZINESS [None]
  - PARAESTHESIA [None]
  - VISION BLURRED [None]
